FAERS Safety Report 15990310 (Version 1)
Quarter: 2019Q1

REPORT INFORMATION
  Report Type: Spontaneous
  Country: CH (occurrence: CH)
  Receive Date: 20190221
  Receipt Date: 20190221
  Transmission Date: 20190418
  Serious: Yes (Death, Hospitalization, Other)
  Sender: FDA-Public Use
  Company Number: PHHY2019CH039637

PATIENT

DRUGS (3)
  1. DIGOXIN SANDOZ [Interacting]
     Active Substance: DIGOXIN
     Dosage: 0.125 MG, QD (FROM 2ND TO 4TH DAY)
     Route: 065
  2. DIGOXIN SANDOZ [Interacting]
     Active Substance: DIGOXIN
     Indication: ATRIAL FIBRILLATION
     Dosage: 1 MG, QD (ON THE FIRST DAY)
     Route: 065
  3. AMIODARONE [Suspect]
     Active Substance: AMIODARONE
     Indication: ATRIAL FIBRILLATION
     Route: 065

REACTIONS (10)
  - Respiratory failure [Unknown]
  - Drug interaction [Unknown]
  - Lung disorder [Unknown]
  - Haemodynamic instability [Unknown]
  - Cardiac arrest [Recovered/Resolved]
  - Multiple organ dysfunction syndrome [Fatal]
  - Cardiomyopathy [Unknown]
  - Hypoxia [Unknown]
  - Pulmonary oedema [Unknown]
  - Ventricular fibrillation [Recovered/Resolved]
